FAERS Safety Report 4314149-5 (Version None)
Quarter: 2004Q1

REPORT INFORMATION
  Report Type: 
  Country: None (occurrence: None)
  Receive Date: 20040309
  Receipt Date: 20040301
  Transmission Date: 20041129
  Serious: Yes (Hospitalization)
  Sender: FDA-Public Use
  Company Number: 200410675EU

PATIENT
  Age: 24 Year
  Sex: Female

DRUGS (1)
  1. SEGURIL [Suspect]

REACTIONS (5)
  - ANAPHYLACTIC REACTION [None]
  - ANGIONEUROTIC OEDEMA [None]
  - DRUG INTERACTION [None]
  - PRURITUS [None]
  - SKIN TEST POSITIVE [None]
